FAERS Safety Report 9173124 (Version 2)
Quarter: 2013Q2

REPORT INFORMATION
  Report Type: Spontaneous
  Country: US (occurrence: US)
  Receive Date: 20130320
  Receipt Date: 20130621
  Transmission Date: 20140414
  Serious: No
  Sender: FDA-Public Use
  Company Number: US-BIOGENIDEC-2013BI024228

PATIENT
  Age: 63 Year
  Sex: Female

DRUGS (1)
  1. TYSABRI [Suspect]
     Indication: MULTIPLE SCLEROSIS
     Route: 042
     Dates: start: 20120925

REACTIONS (6)
  - Weight increased [Not Recovered/Not Resolved]
  - Dry skin [Not Recovered/Not Resolved]
  - Somnolence [Recovered/Resolved with Sequelae]
  - Dyspnoea exertional [Recovered/Resolved]
  - Musculoskeletal disorder [Not Recovered/Not Resolved]
  - Infusion site bruising [Recovered/Resolved]
